FAERS Safety Report 7531445-9 (Version None)
Quarter: 2011Q2

REPORT INFORMATION
  Report Type: 
  Country: None (occurrence: None)
  Receive Date: 20110608
  Receipt Date: 20110531
  Transmission Date: 20111010
  Serious: Yes (Hospitalization)
  Sender: FDA-Public Use
  Company Number: US-BRISTOL-MYERS SQUIBB COMPANY-15793201

PATIENT
  Age: 47 Year
  Sex: Female

DRUGS (3)
  1. CYCLOPHOSPHAMIDE [Suspect]
     Indication: BREAST CANCER
     Route: 065
     Dates: start: 20110307
  2. ADRIAMYCIN PFS [Suspect]
     Indication: BREAST CANCER
     Route: 065
     Dates: start: 20110307
  3. TRIPTORELIN [Suspect]
     Indication: BREAST CANCER
     Route: 030
     Dates: start: 20110307, end: 20110408

REACTIONS (2)
  - HYPERGLYCAEMIA [None]
  - METABOLIC ALKALOSIS [None]
